FAERS Safety Report 10019694 (Version 1)
Quarter: 2014Q1

REPORT INFORMATION
  Report Type: Spontaneous
  Country: DE (occurrence: DE)
  Receive Date: 20140318
  Receipt Date: 20140318
  Transmission Date: 20141002
  Serious: Yes (Other)
  Sender: FDA-Public Use
  Company Number: DE-MYLANLABS-2014S1005094

PATIENT
  Age: 61 Year
  Sex: Male
  Weight: 70.6 kg

DRUGS (1)
  1. ATORVASTATIN [Suspect]
     Indication: HYPERCHOLESTEROLAEMIA
     Route: 048
     Dates: start: 20140214, end: 20140220

REACTIONS (3)
  - Myalgia [Recovered/Resolved]
  - Pruritus [Recovered/Resolved]
  - Renal pain [Recovered/Resolved]
